FAERS Safety Report 16754757 (Version 3)
Quarter: 2020Q1

REPORT INFORMATION
  Report Type: Spontaneous
  Country: US (occurrence: US)
  Receive Date: 20190829
  Receipt Date: 20200103
  Transmission Date: 20200409
  Serious: No
  Sender: FDA-Public Use
  Company Number: US-PFIZER INC-2019369823

PATIENT
  Age: 50 Year
  Sex: Male

DRUGS (1)
  1. XELJANZ [Suspect]
     Active Substance: TOFACITINIB CITRATE
     Indication: COLITIS ULCERATIVE
     Dosage: 10 MG, 2X/DAY
     Route: 048
     Dates: start: 201901, end: 2019

REACTIONS (7)
  - Oedema [Unknown]
  - Swelling [Unknown]
  - Pyrexia [Unknown]
  - Drug intolerance [Unknown]
  - Hypersensitivity [Unknown]
  - Chills [Unknown]
  - Drug hypersensitivity [Unknown]

NARRATIVE: CASE EVENT DATE: 2019
